FAERS Safety Report 8081612-3 (Version None)
Quarter: 2012Q1

REPORT INFORMATION
  Report Type: 
  Country: None (occurrence: None)
  Receive Date: 20120130
  Receipt Date: 20120121
  Transmission Date: 20120608
  Serious: Yes (Other)
  Sender: FDA-Public Use
  Company Number: CHPA2012US001905

PATIENT
  Age: 58 Year
  Sex: Male

DRUGS (2)
  1. EXCEDRIN EXTRA STRENGTH TABLETS [Suspect]
     Indication: HEADACHE
     Dosage: UNK, PRN
     Route: 048
     Dates: start: 19860101, end: 20120101
  2. EXCEDRIN EXTRA STRENGTH TABLETS [Suspect]
     Dosage: 3 DF, EVERY 3-4 HOURS
     Route: 048
     Dates: start: 19840101, end: 19860101

REACTIONS (10)
  - HOMICIDAL IDEATION [None]
  - ARTERIOVENOUS MALFORMATION [None]
  - HAEMORRHAGE INTRACRANIAL [None]
  - SUICIDAL IDEATION [None]
  - HEADACHE [None]
  - OVERDOSE [None]
  - INCORRECT DOSE ADMINISTERED [None]
  - COAGULOPATHY [None]
  - ACTIVITIES OF DAILY LIVING IMPAIRED [None]
  - INCORRECT DRUG ADMINISTRATION DURATION [None]
